FAERS Safety Report 20484384 (Version 2)
Quarter: 2022Q1

REPORT INFORMATION
  Report Type: Spontaneous
  Country: US (occurrence: US)
  Receive Date: 20220217
  Receipt Date: 20220224
  Transmission Date: 20220423
  Serious: Yes (Other)
  Sender: FDA-Public Use
  Company Number: US-PFIZER INC-2020115006

PATIENT
  Age: 63 Year
  Sex: Female

DRUGS (5)
  1. PRISTIQ EXTENDED-RELEASE [Suspect]
     Active Substance: DESVENLAFAXINE SUCCINATE
     Dosage: 100 MG, DAILY (TAKE ONE (1) TABLET BY MOUTH DAILY)
     Route: 048
     Dates: start: 20201231
  2. PRISTIQ EXTENDED-RELEASE [Suspect]
     Active Substance: DESVENLAFAXINE SUCCINATE
     Dosage: 150 MG, DAILY (TAKE ONE (100MG) TABLET BY MOUTH DAILY (TU, TH, SAT, SUN WITH 50 MG TAB))
     Route: 048
     Dates: start: 20210927
  3. PRISTIQ EXTENDED-RELEASE [Suspect]
     Active Substance: DESVENLAFAXINE SUCCINATE
     Dosage: 100 MG, 2X/DAY (TAKE TWO (2) TABLETS BY MOUTH DAILY (M, W, F))
     Route: 048
     Dates: start: 20210927
  4. PRISTIQ EXTENDED-RELEASE [Suspect]
     Active Substance: DESVENLAFAXINE SUCCINATE
     Dosage: 50 MG
     Route: 048
  5. PRISTIQ EXTENDED-RELEASE [Suspect]
     Active Substance: DESVENLAFAXINE SUCCINATE
     Dosage: 200 MG, DAILY

REACTIONS (5)
  - Foot fracture [Unknown]
  - Depression [Unknown]
  - Irritability [Unknown]
  - Hypoaesthesia [Unknown]
  - Stress [Unknown]
